FAERS Safety Report 25274986 (Version 1)
Quarter: 2025Q2

REPORT INFORMATION
  Report Type: Spontaneous
  Country: PL (occurrence: PL)
  Receive Date: 20250506
  Receipt Date: 20250506
  Transmission Date: 20250716
  Serious: Yes (Life-Threatening, Hospitalization, Other)
  Sender: PFIZER
  Company Number: PL-PFIZER INC-202500091750

PATIENT
  Age: 4 Year
  Sex: Female

DRUGS (51)
  1. DOXORUBICIN HYDROCHLORIDE [Suspect]
     Active Substance: DOXORUBICIN HYDROCHLORIDE
     Indication: Leukaemia recurrent
  2. IDARUBICIN HYDROCHLORIDE [Suspect]
     Active Substance: IDARUBICIN HYDROCHLORIDE
     Indication: Leukaemia recurrent
     Route: 042
  3. CYCLOPHOSPHAMIDE [Suspect]
     Active Substance: CYCLOPHOSPHAMIDE
     Indication: Leukaemia recurrent
  4. CYTARABINE [Suspect]
     Active Substance: CYTARABINE
     Indication: Leukaemia recurrent
  5. CYTARABINE [Suspect]
     Active Substance: CYTARABINE
  6. CYTARABINE [Suspect]
     Active Substance: CYTARABINE
  7. CYTARABINE [Suspect]
     Active Substance: CYTARABINE
  8. CYTARABINE [Suspect]
     Active Substance: CYTARABINE
  9. CYTARABINE [Suspect]
     Active Substance: CYTARABINE
  10. CYTARABINE [Suspect]
     Active Substance: CYTARABINE
  11. CYTARABINE [Suspect]
     Active Substance: CYTARABINE
  12. CYTARABINE [Suspect]
     Active Substance: CYTARABINE
  13. CYTARABINE [Suspect]
     Active Substance: CYTARABINE
  14. CYTARABINE [Suspect]
     Active Substance: CYTARABINE
  15. DAUNORUBICIN [Suspect]
     Active Substance: DAUNORUBICIN
     Indication: Leukaemia recurrent
  16. DEXAMETHASONE [Suspect]
     Active Substance: DEXAMETHASONE
     Indication: Leukaemia recurrent
     Route: 048
  17. DEXAMETHASONE [Suspect]
     Active Substance: DEXAMETHASONE
     Route: 048
  18. DEXAMETHASONE [Suspect]
     Active Substance: DEXAMETHASONE
     Route: 048
  19. DEXAMETHASONE [Suspect]
     Active Substance: DEXAMETHASONE
     Route: 048
  20. DEXAMETHASONE [Suspect]
     Active Substance: DEXAMETHASONE
     Route: 048
  21. METHOTREXATE [Suspect]
     Active Substance: METHOTREXATE
     Indication: Leukaemia recurrent
  22. METHOTREXATE [Suspect]
     Active Substance: METHOTREXATE
  23. METHOTREXATE [Suspect]
     Active Substance: METHOTREXATE
  24. METHOTREXATE [Suspect]
     Active Substance: METHOTREXATE
  25. METHOTREXATE [Suspect]
     Active Substance: METHOTREXATE
     Dosage: 20 MG/M2 ONCE A WEEK
     Route: 048
  26. METHOTREXATE [Suspect]
     Active Substance: METHOTREXATE
  27. METHOTREXATE [Suspect]
     Active Substance: METHOTREXATE
  28. METHOTREXATE [Suspect]
     Active Substance: METHOTREXATE
  29. METHOTREXATE [Suspect]
     Active Substance: METHOTREXATE
  30. METHOTREXATE [Suspect]
     Active Substance: METHOTREXATE
  31. METHOTREXATE [Suspect]
     Active Substance: METHOTREXATE
  32. MERCAPTOPURINE [Suspect]
     Active Substance: MERCAPTOPURINE
     Indication: Leukaemia recurrent
     Dosage: 60 MG/M2, 1X/DAY
     Route: 048
  33. MERCAPTOPURINE [Suspect]
     Active Substance: MERCAPTOPURINE
     Dosage: 25 MG/M2, 1X/DAY DAY 1-56
     Route: 048
  34. MERCAPTOPURINE [Suspect]
     Active Substance: MERCAPTOPURINE
     Dosage: 50 MG/M2, 1X/DAY
     Route: 048
  35. MERCAPTOPURINE [Suspect]
     Active Substance: MERCAPTOPURINE
     Route: 048
  36. PEGASPARGASE [Suspect]
     Active Substance: PEGASPARGASE
     Indication: Leukaemia recurrent
  37. PEGASPARGASE [Suspect]
     Active Substance: PEGASPARGASE
  38. PEGASPARGASE [Suspect]
     Active Substance: PEGASPARGASE
  39. PEGASPARGASE [Suspect]
     Active Substance: PEGASPARGASE
  40. PEGASPARGASE [Suspect]
     Active Substance: PEGASPARGASE
  41. PREDNISONE [Suspect]
     Active Substance: PREDNISONE
     Indication: Leukaemia recurrent
     Dosage: 60 MG/M2, 1X/DAY DIVIDED INTO 3 DOSES
     Route: 048
  42. PREDNISOLONE [Suspect]
     Active Substance: PREDNISOLONE
     Indication: Leukaemia recurrent
  43. PREDNISOLONE [Suspect]
     Active Substance: PREDNISOLONE
  44. PREDNISOLONE [Suspect]
     Active Substance: PREDNISOLONE
  45. PREDNISOLONE [Suspect]
     Active Substance: PREDNISOLONE
  46. THIOGUANINE [Suspect]
     Active Substance: THIOGUANINE
     Indication: Leukaemia recurrent
     Route: 048
  47. THIOGUANINE [Suspect]
     Active Substance: THIOGUANINE
     Route: 048
  48. VINCRISTINE [Suspect]
     Active Substance: VINCRISTINE
     Indication: Leukaemia recurrent
     Route: 042
  49. VINCRISTINE [Suspect]
     Active Substance: VINCRISTINE
  50. VINCRISTINE [Suspect]
     Active Substance: VINCRISTINE
  51. VINCRISTINE [Suspect]
     Active Substance: VINCRISTINE

REACTIONS (2)
  - Fournier^s gangrene [Recovered/Resolved]
  - Neutropenia [Unknown]
